FAERS Safety Report 8881140 (Version 1)
Quarter: 2012Q4

REPORT INFORMATION
  Report Type: 
  Country: US (occurrence: US)
  Receive Date: 20121101
  Receipt Date: 20121101
  Transmission Date: 20130627
  Serious: Yes (Hospitalization)
  Sender: FDA-Public Use
  Company Number: US-ELI_LILLY_AND_COMPANY-US201210007021

PATIENT
  Sex: Female

DRUGS (8)
  1. CYMBALTA [Suspect]
     Indication: ANXIETY
     Dosage: 60mg, once daily
  2. METFORMIN [Concomitant]
  3. GLUCAGON [Concomitant]
  4. FUROSEMIDE [Concomitant]
  5. VYTORIN [Concomitant]
  6. FISH OIL [Concomitant]
  7. CENTRUM [Concomitant]
  8. LISINOPRIL [Concomitant]

REACTIONS (9)
  - Pneumonia [Unknown]
  - Infection [Unknown]
  - Arthropod bite [Unknown]
  - Intentional drug misuse [Unknown]
  - Insomnia [Unknown]
  - Diarrhoea [Unknown]
  - Drug withdrawal syndrome [Unknown]
  - Inflammation [Not Recovered/Not Resolved]
  - Burning sensation [Not Recovered/Not Resolved]
